FAERS Safety Report 7071956-6 (Version None)
Quarter: 2010Q4

REPORT INFORMATION
  Report Type: 
  Country: None (occurrence: None)
  Receive Date: 20101029
  Receipt Date: 20091211
  Transmission Date: 20110411
  Serious: No
  Sender: FDA-Public Use
  Company Number: A0816092A

PATIENT
  Age: 70 Year
  Sex: Female

DRUGS (9)
  1. ADVAIR DISKUS 100/50 [Suspect]
     Indication: ASTHMA
     Dosage: 100MCG TWICE PER DAY
     Route: 055
     Dates: start: 20090301
  2. NASACORT [Concomitant]
  3. ASTELIN [Concomitant]
  4. SIMVASTATIN [Concomitant]
  5. AMLODIPINE BESYLATE AND BENAZEPRIL HCL [Concomitant]
  6. QUINAPRIL [Concomitant]
  7. SINGULAIR [Concomitant]
  8. LEVOTHYROXINE SODIUM [Concomitant]
  9. SUCRALFATE [Concomitant]

REACTIONS (2)
  - ASTHENIA [None]
  - PRODUCT QUALITY ISSUE [None]
